FAERS Safety Report 24586727 (Version 3)
Quarter: 2025Q4

REPORT INFORMATION
  Report Type: Report from Study
  Country: AU (occurrence: None)
  Receive Date: 20241107
  Receipt Date: 20251215
  Transmission Date: 20260118
  Serious: Yes (Other)
  Sender: UCB
  Company Number: AU-UCBSA-2024027449

PATIENT
  Age: 25 Year

DRUGS (2)
  1. CERTOLIZUMAB PEGOL [Suspect]
     Active Substance: CERTOLIZUMAB PEGOL
     Indication: Axial spondyloarthritis
     Dosage: 200 MILLIGRAM, EV 2 WEEKS(QOW)
  2. CERTOLIZUMAB PEGOL [Suspect]
     Active Substance: CERTOLIZUMAB PEGOL
     Dosage: 200 MILLIGRAM, WEEKLY (QW)

REACTIONS (3)
  - Axial spondyloarthritis [Unknown]
  - Therapeutic response decreased [Unknown]
  - Incorrect dose administered [Unknown]
